FAERS Safety Report 24313535 (Version 1)
Quarter: 2024Q3

REPORT INFORMATION
  Report Type: Spontaneous
  Country: FR (occurrence: FR)
  Receive Date: 20240912
  Receipt Date: 20240912
  Transmission Date: 20241016
  Serious: Yes (Death, Other)
  Sender: B BRAUN
  Company Number: FR-B.Braun Medical Inc.-2161504

PATIENT
  Age: 38 Year
  Sex: Male

DRUGS (11)
  1. ACETAMINOPHEN [Suspect]
     Active Substance: ACETAMINOPHEN
  2. VALIUM [Suspect]
     Active Substance: DIAZEPAM
  3. QUETIAPINE [Suspect]
     Active Substance: QUETIAPINE
  4. COCAINE [Suspect]
     Active Substance: COCAINE
  5. FENTANYL [Suspect]
     Active Substance: FENTANYL\FENTANYL CITRATE
  6. SKENAN [Suspect]
     Active Substance: MORPHINE SULFATE
  7. AMISULPRIDE [Suspect]
     Active Substance: AMISULPRIDE
  8. CLOTIAZEPAM [Suspect]
     Active Substance: CLOTIAZEPAM
  9. CODEINE [Suspect]
     Active Substance: CODEINE
  10. TRAMADOL [Suspect]
     Active Substance: TRAMADOL\TRAMADOL HYDROCHLORIDE
  11. MIANSERIN HYDROCHLORIDE [Suspect]
     Active Substance: MIANSERIN HYDROCHLORIDE

REACTIONS (16)
  - Myocarditis [Fatal]
  - Monocytosis [Fatal]
  - Inflammation [Fatal]
  - Confusional state [Fatal]
  - Leukocytosis [Fatal]
  - Synovitis [Fatal]
  - Hypersomnia [Fatal]
  - Somnolence [Fatal]
  - Gallbladder injury [Fatal]
  - Hepatic cytolysis [Fatal]
  - Stenosis [Fatal]
  - Toxicity to various agents [Fatal]
  - Cardio-respiratory arrest [Fatal]
  - Coma [Fatal]
  - Hyperglycaemia [Fatal]
  - Cardiomyopathy [Fatal]
